FAERS Safety Report 20787634 (Version 2)
Quarter: 2022Q2

REPORT INFORMATION
  Report Type: Report from Study
  Country: MX (occurrence: MX)
  Receive Date: 20220505
  Receipt Date: 20220513
  Transmission Date: 20220721
  Serious: Yes (Other)
  Sender: FDA-Public Use
  Company Number: MX-SUN PHARMACEUTICAL INDUSTRIES LTD-2022R1-335116

PATIENT
  Age: 19 Year
  Sex: Female

DRUGS (1)
  1. PREDNISONE [Suspect]
     Active Substance: PREDNISONE
     Indication: Meningitis tuberculous
     Dosage: 100 MILLIGRAM, DAILY
     Route: 065

REACTIONS (4)
  - Seizure [Unknown]
  - Central nervous system vasculitis [Unknown]
  - Ischaemic stroke [Unknown]
  - Drug ineffective [Unknown]
